FAERS Safety Report 4379585-X (Version None)
Quarter: 2004Q2

REPORT INFORMATION
  Report Type: 
  Country: None (occurrence: None)
  Receive Date: 20040415
  Receipt Date: 20040128
  Transmission Date: 20050107
  Serious: No
  Sender: FDA-Public Use
  Company Number: 2003-12-0312

PATIENT
  Age: 39 Year
  Sex: Female
  Weight: 56.6996 kg

DRUGS (6)
  1. CLARINEX [Suspect]
     Indication: HYPERSENSITIVITY
     Dosage: 5MG Q DAY ORAL
     Route: 048
     Dates: start: 20020101, end: 20031115
  2. FLONASE 2 SPRAY [Concomitant]
  3. ACULAR [Concomitant]
  4. PATANOL [Concomitant]
  5. ENTEX CAP [Concomitant]
  6. MULTI-VITAMINS [Concomitant]

REACTIONS (5)
  - BRONCHITIS [None]
  - FATIGUE [None]
  - LARYNGITIS VIRAL [None]
  - MALAISE [None]
  - NASOPHARYNGITIS [None]
